FAERS Safety Report 8894884 (Version 2)
Quarter: 2013Q2

REPORT INFORMATION
  Report Type: Report from Study
  Country: BR (occurrence: BR)
  Receive Date: 20121108
  Receipt Date: 20130425
  Transmission Date: 20140414
  Serious: Yes (Other)
  Sender: FDA-Public Use
  Company Number: PHHY2012BR099715

PATIENT
  Age: 73 Year
  Sex: Female

DRUGS (7)
  1. DIOVAN AMLO FIX [Suspect]
     Indication: CEREBROVASCULAR ACCIDENT
     Dosage: 1 DF(VALS 320/AMLO 10 MG), PER DAY
     Route: 048
  2. DIOVAN AMLO FIX [Suspect]
     Dosage: 1 DF(VALS 320/AMLO 5 MG), PER DAY
     Route: 048
  3. PLAVIX [Concomitant]
     Indication: BLOOD DISORDER
     Dosage: 1 DF, PER DAY
     Route: 048
  4. PLAGREL [Concomitant]
     Dosage: 1 DF (75MG), DAILY
     Route: 048
  5. CRESTOR [Concomitant]
     Indication: BONE DISORDER
     Dosage: 1 DF (5MG), UNK
     Route: 048
  6. METFORMIN HYDROCHLORIDE [Concomitant]
     Dosage: 1 DF (85MG), DAILY
     Route: 048
  7. PURAN T4 [Concomitant]
     Dosage: 1 DF (50 UG), DAILY
     Route: 048

REACTIONS (4)
  - Diabetes mellitus [Recovered/Resolved]
  - Chromaturia [Recovered/Resolved]
  - Burning feet syndrome [Recovered/Resolved]
  - Joint swelling [Recovered/Resolved]
